FAERS Safety Report 8389859-3 (Version None)
Quarter: 2012Q2

REPORT INFORMATION
  Report Type: 
  Country: None (occurrence: None)
  Receive Date: 20120522
  Receipt Date: 20120515
  Transmission Date: 20120825
  Serious: Yes (Other)
  Sender: FDA-Public Use
  Company Number: DSA_57070_2012

PATIENT
  Sex: Female
  Weight: 57.6068 kg

DRUGS (9)
  1. MULTI-VITAMINS [Concomitant]
  2. HYDROCODONE BITARTRATE [Concomitant]
  3. B12-VITAMIN [Concomitant]
  4. GLYBURIDE [Concomitant]
  5. SIMVASTATIN [Concomitant]
  6. CYMBALTA [Concomitant]
  7. XENAZINE [Suspect]
     Indication: TARDIVE DYSKINESIA
     Dosage: (12.5 MG BID ORAL)
     Route: 048
     Dates: start: 20120511
  8. XANAX [Concomitant]
  9. DIGOXIN [Concomitant]

REACTIONS (7)
  - SUICIDAL IDEATION [None]
  - BALANCE DISORDER [None]
  - NO THERAPEUTIC RESPONSE [None]
  - ASTHENIA [None]
  - DEPRESSION [None]
  - DIZZINESS [None]
  - TARDIVE DYSKINESIA [None]
